FAERS Safety Report 9728763 (Version 2)
Quarter: 2013Q4

REPORT INFORMATION
  Report Type: Spontaneous
  Country: US (occurrence: US)
  Receive Date: 20131204
  Receipt Date: 20131220
  Transmission Date: 20140711
  Serious: Yes (Death, Other)
  Sender: FDA-Public Use
  Company Number: US-US-EMD SERONO, INC.-7254647

PATIENT
  Sex: Male
  Weight: 122 kg

DRUGS (9)
  1. EGRIFTA [Suspect]
     Indication: LIPODYSTROPHY ACQUIRED
     Route: 058
     Dates: start: 20130708
  2. EXELON                             /01383201/ [Concomitant]
     Indication: PRODUCT USED FOR UNKNOWN INDICATION
  3. ZIAGEN [Concomitant]
     Indication: EXPOSURE TO COMMUNICABLE DISEASE
  4. VIREAD                             /01490001/ [Concomitant]
     Indication: EXPOSURE TO COMMUNICABLE DISEASE
  5. SUSTIVA [Concomitant]
     Indication: EXPOSURE TO COMMUNICABLE DISEASE
  6. EPZICOM                            /01788801/ [Concomitant]
     Indication: EXPOSURE TO COMMUNICABLE DISEASE
  7. VIAGRA                             /01367501/ [Concomitant]
     Indication: PRODUCT USED FOR UNKNOWN INDICATION
  8. CIALIS [Concomitant]
     Indication: PRODUCT USED FOR UNKNOWN INDICATION
  9. LEVITRA [Concomitant]
     Indication: PRODUCT USED FOR UNKNOWN INDICATION

REACTIONS (4)
  - Cardiac arrest [Fatal]
  - Myocardial infarction [Fatal]
  - Dementia [Unknown]
  - Renal failure chronic [Unknown]
